FAERS Safety Report 4923875-6 (Version None)
Quarter: 2006Q1

REPORT INFORMATION
  Report Type: 
  Country: None (occurrence: None)
  Receive Date: 20060224
  Receipt Date: 20060224
  Transmission Date: 20060701
  Serious: Yes (Hospitalization)
  Sender: FDA-Public Use
  Company Number: None

PATIENT
  Sex: Female
  Weight: 43.2 kg

DRUGS (2)
  1. DOCETAXEL [Suspect]
     Indication: BREAST CANCER METASTATIC
     Dosage: 75 MG/M2 DAY 1 Q 21 DAYS IV
     Route: 042
     Dates: start: 20051215, end: 20060126
  2. CAPECITABINE [Suspect]
     Indication: BREAST CANCER METASTATIC
     Dosage: 1000 MG DAYS 1-14 Q 21 DAY PO
     Route: 048
     Dates: start: 20051215, end: 20060208

REACTIONS (3)
  - INFLAMMATION [None]
  - NEOPLASM PROGRESSION [None]
  - PAIN [None]
